FAERS Safety Report 5568726-4 (Version None)
Quarter: 2007Q4

REPORT INFORMATION
  Report Type: 
  Country: None (occurrence: None)
  Receive Date: 20071220
  Receipt Date: 20061204
  Transmission Date: 20080405
  Serious: No
  Sender: FDA-Public Use
  Company Number: A0630241A

PATIENT
  Age: 86 Year
  Sex: Male

DRUGS (3)
  1. AVODART [Suspect]
     Dosage: .5MG PER DAY
     Route: 048
  2. TOPROL-XL [Concomitant]
  3. FOSAMAX [Concomitant]

REACTIONS (1)
  - BREAST PAIN [None]
